FAERS Safety Report 4572532-7 (Version None)
Quarter: 2005Q1

REPORT INFORMATION
  Report Type: 
  Country: None (occurrence: None)
  Receive Date: 20050207
  Receipt Date: 20050128
  Transmission Date: 20050727
  Serious: Yes (Life-Threatening, Disabling)
  Sender: FDA-Public Use
  Company Number: US-MERCK-0501USA04442

PATIENT
  Age: 57 Year
  Sex: Female

DRUGS (3)
  1. VYTORIN [Suspect]
     Indication: BLOOD TRIGLYCERIDES INCREASED
     Route: 048
     Dates: start: 20041208, end: 20050101
  2. TRICOR [Concomitant]
     Route: 065
  3. DIOVAN [Concomitant]
     Route: 065

REACTIONS (2)
  - ARTHRALGIA [None]
  - DIFFICULTY IN WALKING [None]
